FAERS Safety Report 20464390 (Version 1)
Quarter: 2022Q1

REPORT INFORMATION
  Report Type: Spontaneous
  Country: US (occurrence: US)
  Receive Date: 20220211
  Receipt Date: 20220211
  Transmission Date: 20220423
  Serious: Yes (Other)
  Sender: FDA-Public Use
  Company Number: US-NOVARTISPH-NVSC2022US031605

PATIENT
  Age: 53 Year
  Sex: Female

DRUGS (2)
  1. RANITIDINE [Suspect]
     Active Substance: RANITIDINE
     Indication: Gallbladder disorder
     Dosage: 300 MG,,,OTHER,3-4 DOSES FOR GALLBLADDER FLAIR UPS
     Route: 048
     Dates: start: 198501, end: 202010
  2. RANITIDINE [Suspect]
     Active Substance: RANITIDINE
     Indication: Gallbladder disorder
     Dosage: 300 MG,,,OTHER,3-4 DOSES FOR GALLBLADDER FLAIR UPS
     Route: 048
     Dates: start: 198501, end: 202010

REACTIONS (7)
  - Gastrointestinal carcinoma [Unknown]
  - Hepatic cancer [Unknown]
  - Lung neoplasm malignant [Unknown]
  - Gallbladder cancer [Unknown]
  - Incorrect dose administered [Unknown]
  - Inappropriate schedule of product administration [Unknown]
  - Product use in unapproved indication [Unknown]

NARRATIVE: CASE EVENT DATE: 20191001
